FAERS Safety Report 19709899 (Version 1)
Quarter: 2021Q3

REPORT INFORMATION
  Report Type: Other
  Country: CA (occurrence: CA)
  Receive Date: 20210816
  Receipt Date: 20210816
  Transmission Date: 20211014
  Serious: Yes (Other)
  Sender: FDA-Public Use
  Company Number: CA-APOTEX-2021AP031872

PATIENT

DRUGS (1)
  1. DIVALPROEX [Suspect]
     Active Substance: DIVALPROEX SODIUM
     Indication: PRODUCT USED FOR UNKNOWN INDICATION
     Dosage: UNK
     Route: 065

REACTIONS (13)
  - Irritability [Unknown]
  - Agitation [Unknown]
  - Memory impairment [Unknown]
  - Headache [Unknown]
  - Vomiting [Unknown]
  - Mood swings [Unknown]
  - Nausea [Unknown]
  - Bleeding time prolonged [Unknown]
  - Dizziness [Unknown]
  - Asthenia [Unknown]
  - Insomnia [Unknown]
  - Brain injury [Unknown]
  - Disturbance in attention [Unknown]
